FAERS Safety Report 10477996 (Version 1)
Quarter: 2014Q3

REPORT INFORMATION
  Report Type: Spontaneous
  Country: US (occurrence: None)
  Receive Date: 20140924
  Receipt Date: 20140924
  Transmission Date: 20150326
  Serious: Yes (Other)
  Sender: FDA-Public Use
  Company Number: INT_00413_2014

PATIENT
  Age: 66 Year
  Sex: Female

DRUGS (1)
  1. PACLITAXEL (HQ SPECIALTY) [Suspect]
     Active Substance: PACLITAXEL
     Indication: INVASIVE DUCTAL BREAST CARCINOMA

REACTIONS (7)
  - Palmar-plantar erythrodysaesthesia syndrome [None]
  - Swelling [None]
  - Erythema [None]
  - Skin exfoliation [None]
  - Hypergeusia [None]
  - Hyperkeratosis [None]
  - Pain in extremity [None]
